FAERS Safety Report 14169110 (Version 2)
Quarter: 2018Q1

REPORT INFORMATION
  Report Type: Report from Study
  Country: None (occurrence: US)
  Receive Date: 20171107
  Receipt Date: 20180126
  Transmission Date: 20180508
  Serious: Yes (Death, Hospitalization)
  Sender: FDA-Public Use
  Company Number: US-VIFOR (INTERNATIONAL) INC.-VIT-2016-07787

PATIENT
  Sex: Male
  Weight: 79 kg

DRUGS (14)
  1. CALTRATE WITH VITAMIN D [Concomitant]
     Active Substance: CALCIUM CARBONATE\CHOLECALCIFEROL
  2. LEVOTHYROXINE. [Concomitant]
     Active Substance: LEVOTHYROXINE
  3. PIOGLITAZONE. [Concomitant]
     Active Substance: PIOGLITAZONE
  4. IRON [Concomitant]
     Active Substance: IRON
  5. CLOPIDOGREL [Concomitant]
     Active Substance: CLOPIDOGREL BISULFATE
  6. LYRICA [Concomitant]
     Active Substance: PREGABALIN
  7. MAGNESIUM OXIDE. [Concomitant]
     Active Substance: MAGNESIUM OXIDE
  8. VELTASSA [Suspect]
     Active Substance: PATIROMER
     Indication: HYPERKALAEMIA
     Route: 048
     Dates: start: 201610, end: 201610
  9. VELTASSA [Suspect]
     Active Substance: PATIROMER
     Route: 048
     Dates: start: 20161110
  10. PLAVIX [Concomitant]
     Active Substance: CLOPIDOGREL BISULFATE
  11. VITAMINS NOS [Concomitant]
     Active Substance: VITAMINS
  12. TAMSULOSIN [Concomitant]
     Active Substance: TAMSULOSIN
  13. FERROUS SULFATE. [Concomitant]
     Active Substance: FERROUS SULFATE
  14. PANTOPRAZOLE [Concomitant]
     Active Substance: PANTOPRAZOLE

REACTIONS (16)
  - Treatment noncompliance [Recovered/Resolved]
  - Malaise [Unknown]
  - Prostatomegaly [Unknown]
  - Urinary incontinence [Unknown]
  - Dysuria [Unknown]
  - Speech disorder [Unknown]
  - Abdominal rigidity [Unknown]
  - Hypertension [Fatal]
  - Chronic kidney disease [Unknown]
  - Urinary tract infection [Recovered/Resolved]
  - Condition aggravated [Unknown]
  - Renal failure [Unknown]
  - Pain [Unknown]
  - Gait disturbance [Unknown]
  - General physical health deterioration [Not Recovered/Not Resolved]
  - Diabetes mellitus [Fatal]

NARRATIVE: CASE EVENT DATE: 2016
